FAERS Safety Report 7633771-1 (Version None)
Quarter: 2011Q3

REPORT INFORMATION
  Report Type: 
  Country: None (occurrence: None)
  Receive Date: 20110718
  Receipt Date: 20110707
  Transmission Date: 20111222
  Serious: Yes (Life-Threatening, Hospitalization)
  Sender: FDA-Public Use
  Company Number: IMP_05404_2011

PATIENT
  Sex: Male
  Weight: 67.8581 kg

DRUGS (2)
  1. PROPAFENONE HCL [Suspect]
     Indication: PRODUCT USED FOR UNKNOWN INDICATION
     Dosage: 425 MG, QD, ORAL
     Route: 048
     Dates: start: 20110625
  2. RYTHMOL [Suspect]
     Indication: PRODUCT USED FOR UNKNOWN INDICATION
     Dosage: 425 MG, QD, ORAL
     Route: 048
     Dates: start: 20110611

REACTIONS (1)
  - COMA [None]
